FAERS Safety Report 8845580 (Version 2)
Quarter: 2013Q1

REPORT INFORMATION
  Report Type: Spontaneous
  Country: DK (occurrence: DE)
  Receive Date: 20121017
  Receipt Date: 20130111
  Transmission Date: 20140127
  Serious: Yes (Hospitalization, Other)
  Sender: FDA-Public Use
  Company Number: DE-FRI-1000039488

PATIENT
  Age: 21 Year
  Sex: Female
  Weight: 65 kg

DRUGS (2)
  1. CITALOPRAM [Suspect]
     Dosage: 20 MG
     Route: 048
  2. ALCOHOL [Interacting]
     Dosage: PRESUMABLY MODERATE QUANTITY

REACTIONS (5)
  - Loss of consciousness [Recovered/Resolved]
  - Sexually inappropriate behaviour [Recovered/Resolved]
  - Disinhibition [Recovered/Resolved]
  - Retrograde amnesia [Recovered/Resolved]
  - Alcohol interaction [Recovered/Resolved]
